FAERS Safety Report 8857553 (Version 1)
Quarter: 2012Q4

REPORT INFORMATION
  Report Type: 
  Country: CN (occurrence: CN)
  Receive Date: 20121024
  Receipt Date: 20121024
  Transmission Date: 20130627
  Serious: Yes (Other)
  Sender: FDA-Public Use
  Company Number: CN-GLAXOSMITHKLINE-B0839723A

PATIENT
  Age: 3 Year
  Sex: Female
  Weight: 20 kg

DRUGS (2)
  1. SALBUTAMOL SULPHATE [Suspect]
     Indication: ASTHMA
     Route: 042
     Dates: start: 20111201, end: 20111201
  2. ATROVENT [Suspect]
     Indication: PRODUCT USED FOR UNKNOWN INDICATION
     Route: 042

REACTIONS (4)
  - Tachycardia [Recovered/Resolved]
  - Tremor [Recovering/Resolving]
  - Chills [Recovering/Resolving]
  - Incorrect route of drug administration [Unknown]
